FAERS Safety Report 9240393 (Version 1)
Quarter: 2013Q2

REPORT INFORMATION
  Report Type: Spontaneous
  Country: US (occurrence: None)
  Receive Date: 20130417
  Receipt Date: 20130417
  Transmission Date: 20140414
  Serious: Yes (Other)
  Sender: FDA-Public Use
  Company Number: THQ2013A02824

PATIENT
  Sex: Female

DRUGS (5)
  1. LANSOPRAZOLE (LANSOPRAZOLE) [Suspect]
     Indication: PRODUCT USED FOR UNKNOWN INDICATION
     Dosage: 1D
  2. FOLIC ACID [Suspect]
     Indication: PRODUCT USED FOR UNKNOWN INDICATION
     Dosage: 6 DAYS PER WEEK
  3. ENBREL [Suspect]
     Indication: ARTHRITIS
     Dates: start: 201111
  4. LYRICA (PREGABALIN) [Suspect]
     Dosage: 75 MG, 2 IN 1 D
  5. QUINORIC [Suspect]
     Dosage: 1 DF, 2 IN 1 D

REACTIONS (7)
  - Arthritis [None]
  - Nervous system disorder [None]
  - Gastrointestinal motility disorder [None]
  - Inflammation [None]
  - Asthenia [None]
  - Substance-induced psychotic disorder [None]
  - Mental disorder [None]
